FAERS Safety Report 23055195 (Version 1)
Quarter: 2023Q4

REPORT INFORMATION
  Report Type: Spontaneous
  Country: US (occurrence: US)
  Receive Date: 20231011
  Receipt Date: 20231011
  Transmission Date: 20240110
  Serious: No
  Sender: FDA-Public Use
  Company Number: US-SA-SAC20231005001567

PATIENT
  Age: 29 Year
  Sex: Male
  Weight: 139.7 kg

DRUGS (6)
  1. DUPIXENT [Suspect]
     Active Substance: DUPILUMAB
     Indication: Eosinophilic oesophagitis
     Dosage: 300 MG, QW
     Route: 058
  2. ALBUTEROL [Concomitant]
     Active Substance: ALBUTEROL
     Route: 055
  3. DICLOFENAC [Concomitant]
     Active Substance: DICLOFENAC
  4. EMU OIL [Concomitant]
     Active Substance: EMU OIL
  5. JARDIANCE [Concomitant]
     Active Substance: EMPAGLIFLOZIN
  6. LEVOCETIRIZINE [Concomitant]
     Active Substance: LEVOCETIRIZINE

REACTIONS (8)
  - Haematuria [Unknown]
  - Cough [Unknown]
  - Choking sensation [Unknown]
  - Renal disorder [Unknown]
  - Skin irritation [Unknown]
  - Skin swelling [Unknown]
  - Back pain [Unknown]
  - Erythema [Unknown]

NARRATIVE: CASE EVENT DATE: 20230901
